FAERS Safety Report 4802323-0 (Version None)
Quarter: 2005Q4

REPORT INFORMATION
  Report Type: 
  Country: None (occurrence: None)
  Receive Date: 20051012
  Receipt Date: 20050921
  Transmission Date: 20060501
  Serious: Yes (Hospitalization)
  Sender: FDA-Public Use
  Company Number: 32291

PATIENT
  Age: 80 Year
  Sex: Male

DRUGS (3)
  1. BRINZOLAMIDE 1% SUSPENSION [Suspect]
     Indication: GLAUCOMA
     Dosage: 1 GTT OS BID OPHT
     Route: 047
     Dates: start: 20041021, end: 20050128
  2. LATANOPROST SODIUM [Concomitant]
  3. CARTELOLOL HYDROCHLORIDE [Concomitant]
     Dosage: 1GTT BID QD

REACTIONS (1)
  - CEREBRAL INFARCTION [None]
